FAERS Safety Report 7460764-X (Version None)
Quarter: 2011Q2

REPORT INFORMATION
  Report Type: 
  Country: None (occurrence: None)
  Receive Date: 20110505
  Receipt Date: 20110425
  Transmission Date: 20111010
  Serious: Yes (Death, Hospitalization)
  Sender: FDA-Public Use
  Company Number: US-CELGENEUS-163-21880-11043204

PATIENT
  Age: 59 Year
  Sex: Male

DRUGS (11)
  1. MORPHINE [Concomitant]
     Route: 065
  2. SENNA [Concomitant]
     Route: 065
  3. DEXAMETHASONE [Concomitant]
     Route: 065
  4. DOCUSATE [Concomitant]
     Route: 065
  5. LORAZEPAM [Concomitant]
     Route: 065
  6. PROCHLORPERAZINE TAB [Concomitant]
     Route: 065
  7. VELCADE [Concomitant]
     Route: 065
  8. REVLIMID [Suspect]
     Indication: MULTIPLE MYELOMA
     Dosage: 10 MILLIGRAM
     Route: 048
     Dates: start: 20100801
  9. GLARGINE [Concomitant]
     Route: 065
  10. NOVOLIN R [Concomitant]
     Route: 065
  11. ACYCLOVIR [Concomitant]
     Route: 065

REACTIONS (2)
  - DEATH [None]
  - MULTIPLE MYELOMA [None]
